FAERS Safety Report 10374938 (Version 1)
Quarter: 2014Q3

REPORT INFORMATION
  Report Type: Spontaneous
  Country: US (occurrence: None)
  Receive Date: 20140808
  Receipt Date: 20140808
  Transmission Date: 20150326
  Serious: No
  Sender: FDA-Public Use
  Company Number: None

PATIENT
  Age: 06 Year
  Sex: Male

DRUGS (1)
  1. WELLBUTRIN [Suspect]
     Active Substance: BUPROPION HYDROCHLORIDE
     Dates: start: 201306

REACTIONS (3)
  - Product substitution issue [None]
  - Adverse reaction [None]
  - Therapeutic response changed [None]

NARRATIVE: CASE EVENT DATE: 20130624
